FAERS Safety Report 10039080 (Version 1)
Quarter: 2014Q1

REPORT INFORMATION
  Report Type: Report from Study
  Country: AT (occurrence: AT)
  Receive Date: 20140326
  Receipt Date: 20140326
  Transmission Date: 20141002
  Serious: Yes (Other)
  Sender: FDA-Public Use
  Company Number: PHHY2014AT035312

PATIENT
  Age: 58 Year
  Sex: Male
  Weight: 52 kg

DRUGS (15)
  1. MYCOPHENOLIC ACID [Suspect]
     Indication: IMMUNOSUPPRESSION
     Dosage: 360 MG, UNK
  2. MYCOPHENOLIC ACID [Suspect]
     Dosage: 1040 MG, DAILY
  3. TACROLIMUS [Suspect]
     Indication: IMMUNOSUPPRESSION
     Dosage: 7 MG, DAILY
  4. TACROLIMUS [Suspect]
     Dosage: 2 MG, DAILY
  5. APREDNISLON [Suspect]
     Indication: IMMUNOSUPPRESSION
     Dosage: 7.5 MG, DAILY
  6. APREDNISLON [Suspect]
     Dosage: 5 MG, DAILY
  7. APREDNISLON [Suspect]
     Dosage: 2.5 MG, DAILY
  8. FRAGMIN [Concomitant]
     Indication: THROMBOSIS PROPHYLAXIS
     Route: 058
  9. PANTOLOC//PANTOPRAZOLE SODIUM SESQUIHYDRATE [Concomitant]
     Indication: GASTRIC DISORDER
     Dosage: 40 MG,
  10. HALCION [Concomitant]
     Indication: SLEEP DISORDER
  11. LIDAPRIM [Concomitant]
     Indication: PROPHYLAXIS
  12. DILATREND [Concomitant]
     Indication: HYPERTENSION
     Dosage: 25 MG, 2 X ?
  13. ROCALTROL [Concomitant]
     Indication: VITAMIN D DEFICIENCY
     Dosage: 0.25 UG, 2X1/2
  14. VALYC [Concomitant]
     Indication: ANTIVIRAL PROPHYLAXIS
     Dosage: 450 MG, 1X1
  15. AMLODIPIN//AMLODIPINE [Concomitant]
     Indication: HYPERTENSION
     Dosage: 5 MG, 1X1

REACTIONS (4)
  - Intervertebral disc protrusion [Unknown]
  - Pain [Unknown]
  - Osteoporosis [Unknown]
  - Blood glucose increased [Unknown]
